FAERS Safety Report 8106492-9 (Version None)
Quarter: 2012Q1

REPORT INFORMATION
  Report Type: 
  Country: None (occurrence: None)
  Receive Date: 20120202
  Receipt Date: 20120127
  Transmission Date: 20120608
  Serious: Yes (Other)
  Sender: FDA-Public Use
  Company Number: US-B.I. PHARMACEUTICALS,INC./RIDGEFIELD-2012-BP-01876BP

PATIENT
  Sex: Male
  Weight: 140 kg

DRUGS (3)
  1. EDARBI [Suspect]
     Indication: HYPERTENSION
     Dosage: 80 MG
     Route: 048
     Dates: start: 20110816, end: 20111011
  2. NORVASC [Suspect]
     Indication: HYPERTENSION
     Dosage: 5 MG
     Route: 048
     Dates: start: 20110816, end: 20111011
  3. CATAPRES [Suspect]
     Indication: HYPERTENSION
     Dosage: 0.3 MG
     Route: 048
     Dates: start: 20070101

REACTIONS (5)
  - RENAL IMPAIRMENT [None]
  - FATIGUE [None]
  - HYPOTENSION [None]
  - SYNCOPE [None]
  - DIZZINESS [None]
